FAERS Safety Report 19318571 (Version 2)
Quarter: 2021Q3

REPORT INFORMATION
  Report Type: Spontaneous
  Country: JP (occurrence: JP)
  Receive Date: 20210527
  Receipt Date: 20210709
  Transmission Date: 20211014
  Serious: Yes (Other)
  Sender: FDA-Public Use
  Company Number: JP-MYLANLABS-2021M1030506

PATIENT
  Age: 72 Year
  Sex: Male

DRUGS (3)
  1. BOSUTINIB [Suspect]
     Active Substance: BOSUTINIB
     Indication: CHRONIC MYELOID LEUKAEMIA
     Dosage: DOSE: 400?500 MG/DAY
     Route: 065
     Dates: start: 201603
  2. IMATINIB. [Suspect]
     Active Substance: IMATINIB MESYLATE
     Indication: CHRONIC MYELOID LEUKAEMIA
     Route: 065
  3. NILOTINIB [Suspect]
     Active Substance: NILOTINIB
     Indication: CHRONIC MYELOID LEUKAEMIA
     Route: 065

REACTIONS (2)
  - Second primary malignancy [Recovered/Resolved]
  - High-grade B-cell lymphoma [Recovered/Resolved]
